FAERS Safety Report 9984118 (Version 1)
Quarter: 2014Q1

REPORT INFORMATION
  Report Type: Report from Study
  Country: US (occurrence: US)
  Receive Date: 20140307
  Receipt Date: 20140307
  Transmission Date: 20141002
  Serious: No
  Sender: FDA-Public Use
  Company Number: US-ABBVIE-13P-163-1182348-00

PATIENT
  Age: 26 Year
  Sex: Female

DRUGS (4)
  1. HUMIRA [Suspect]
     Indication: COLITIS ULCERATIVE
     Dates: start: 20131216, end: 20131216
  2. HUMIRA [Suspect]
  3. CELEXA [Concomitant]
     Indication: DEPRESSION
  4. IRON [Concomitant]
     Indication: IRON DEFICIENCY

REACTIONS (1)
  - Injection site bruising [Not Recovered/Not Resolved]
